FAERS Safety Report 18955704 (Version 9)
Quarter: 2022Q1

REPORT INFORMATION
  Report Type: Spontaneous
  Country: IN (occurrence: IN)
  Receive Date: 20210301
  Receipt Date: 20220330
  Transmission Date: 20220423
  Serious: Yes (Other)
  Sender: FDA-Public Use
  Company Number: IN-PFIZER INC-2020476720

PATIENT
  Age: 63 Year
  Sex: Female
  Weight: 39.9 kg

DRUGS (10)
  1. PALBOCICLIB [Suspect]
     Active Substance: PALBOCICLIB
     Indication: Breast cancer female
     Dosage: 100 MG, 1X/DAY
     Route: 048
     Dates: start: 20170922
  2. PALBOCICLIB [Suspect]
     Active Substance: PALBOCICLIB
     Dosage: 100 MG, CYCLIC (ONCE DAILY D1-21 EVERY 28 DAYS)
     Route: 048
     Dates: start: 20200922
  3. PALBOCICLIB [Suspect]
     Active Substance: PALBOCICLIB
     Dosage: 100 MG, 1X/DAY
     Route: 048
  4. SODIUM BICARBONATE [Concomitant]
     Active Substance: SODIUM BICARBONATE
     Dosage: GARGLE TIC
  5. SHELCAL CT [Concomitant]
     Dosage: UNK UNK, 1X/DAY
  6. LETALL [Concomitant]
     Dosage: 2.5 MG, 1X/DAY
  7. METOCLOPRAMIDE HYDROCHLORIDE [Concomitant]
     Active Substance: METOCLOPRAMIDE HYDROCHLORIDE
     Dosage: 1 GM SOS (MAX 3 TABS/DAY)
  8. PYRIGESIC [Concomitant]
     Dosage: 1 GM SOS
  9. ZOLEDRONIC ACID [Concomitant]
     Active Substance: ZOLEDRONIC ACID
     Dosage: 3 MG IN 100 ML NS OVER 20 MINS
     Dates: start: 202202
  10. CALCIUM CARBONATE\CHOLECALCIFEROL [Concomitant]
     Active Substance: CALCIUM CARBONATE\CHOLECALCIFEROL
     Dosage: UNK, 1X/DAY

REACTIONS (11)
  - Haemoglobin decreased [Unknown]
  - Spinal cord oedema [Unknown]
  - Neoplasm progression [Not Recovered/Not Resolved]
  - Neutrophil count decreased [Unknown]
  - Dyspepsia [Unknown]
  - Pain [Unknown]
  - Asthenia [Not Recovered/Not Resolved]
  - Blood pressure increased [Unknown]
  - Dizziness [Unknown]
  - Osteoarthritis [Unknown]
  - Creatinine renal clearance decreased [Unknown]

NARRATIVE: CASE EVENT DATE: 20200921
